FAERS Safety Report 20335276 (Version 5)
Quarter: 2023Q1

REPORT INFORMATION
  Report Type: Report from Study
  Country: CA (occurrence: CA)
  Receive Date: 20220114
  Receipt Date: 20230227
  Transmission Date: 20230417
  Serious: Yes (Other)
  Sender: FDA-Public Use
  Company Number: CA-JNJFOC-20220109333

PATIENT
  Age: 3 Decade
  Sex: Male

DRUGS (2)
  1. REMICADE [Suspect]
     Active Substance: INFLIXIMAB
     Indication: Hidradenitis
     Dosage: LAST DOSE WAS ON 29-JUN-2022. V4: EXPIRED DATE- 31-JUL-2025, V5: BATCH NUMBER: KGM70013 EXPIRY DATE:
     Route: 042
     Dates: start: 20201215
  2. REMICADE [Suspect]
     Active Substance: INFLIXIMAB
     Route: 042

REACTIONS (2)
  - Wound infection pseudomonas [Unknown]
  - Wound infection [Not Recovered/Not Resolved]
